FAERS Safety Report 7277105-3 (Version None)
Quarter: 2011Q1

REPORT INFORMATION
  Report Type: 
  Country: None (occurrence: None)
  Receive Date: 20110202
  Receipt Date: 20110202
  Transmission Date: 20110831
  Serious: No
  Sender: FDA-Public Use
  Company Number: None

PATIENT
  Age: 85 Year
  Sex: Female
  Weight: 63.5036 kg

DRUGS (1)
  1. AZITHROMYCIN [Suspect]
     Indication: GINGIVAL PAIN
     Dosage: 2 TABS 1ST DAY 1 TAB DAILY
     Dates: start: 20110110, end: 20110111

REACTIONS (6)
  - ABNORMAL DREAMS [None]
  - CONFUSIONAL STATE [None]
  - HEADACHE [None]
  - DIZZINESS [None]
  - TINNITUS [None]
  - SOMNOLENCE [None]
